FAERS Safety Report 4514472-5 (Version None)
Quarter: 2004Q4

REPORT INFORMATION
  Report Type: 
  Country: None (occurrence: None)
  Receive Date: 20040928
  Receipt Date: 20040716
  Transmission Date: 20050328
  Serious: No
  Sender: FDA-Public Use
  Company Number: 04P-163-0267325-00

PATIENT
  Age: 77 Year
  Sex: Female
  Weight: 83.4619 kg

DRUGS (4)
  1. HUMIRA [Suspect]
     Indication: RHEUMATOID ARTHRITIS
     Dosage: 40 MG, 1 IN 2 WK, SUBCUTANEOUS
     Route: 058
     Dates: start: 20040712
  2. PREDNISONE [Concomitant]
  3. ALBUTEROL [Concomitant]
  4. CORTISONE [Concomitant]

REACTIONS (5)
  - ANOREXIA [None]
  - HYPERHIDROSIS [None]
  - NAUSEA [None]
  - PALPITATIONS [None]
  - TREMOR [None]
